FAERS Safety Report 15985699 (Version 1)
Quarter: 2019Q1

REPORT INFORMATION
  Report Type: Spontaneous
  Country: US (occurrence: US)
  Receive Date: 20190220
  Receipt Date: 20190220
  Transmission Date: 20190418
  Serious: Yes (Death, Life-Threatening, Hospitalization, Disabling, Other)
  Sender: FDA-Public Use
  Company Number: None

PATIENT
  Age: 27 Year
  Sex: Male

DRUGS (1)
  1. COSENTYX [Suspect]
     Active Substance: SECUKINUMAB
     Indication: PSORIASIS
     Dosage: ?          QUANTITY:2 INJECTION(S);OTHER FREQUENCY:Q 4 WEEKS;?
     Route: 030
     Dates: start: 20180101, end: 20190101

REACTIONS (3)
  - Irritable bowel syndrome [None]
  - Crohn^s disease [None]
  - Seizure [None]

NARRATIVE: CASE EVENT DATE: 20180101
